FAERS Safety Report 25498451 (Version 1)
Quarter: 2025Q3

REPORT INFORMATION
  Report Type: Report from Study
  Country: CN (occurrence: CN)
  Receive Date: 20250701
  Receipt Date: 20250701
  Transmission Date: 20251020
  Serious: Yes (Hospitalization)
  Sender: ABBVIE
  Company Number: CN-ABBVIE-6343658

PATIENT
  Age: 78 Year
  Sex: Male
  Weight: 80 kg

DRUGS (51)
  1. OZURDEX [Suspect]
     Active Substance: DEXAMETHASONE
     Indication: Diabetic retinal oedema
     Route: 050
     Dates: start: 20241129, end: 20241129
  2. OZURDEX [Suspect]
     Active Substance: DEXAMETHASONE
     Route: 050
     Dates: start: 20250508, end: 20250508
  3. FARICIMAB [Concomitant]
     Active Substance: FARICIMAB
     Indication: Diabetic retinal oedema
     Route: 031
     Dates: start: 20250411, end: 20250411
  4. TRIAMCINOLONE ACETONIDE [Concomitant]
     Active Substance: TRIAMCINOLONE ACETONIDE
     Indication: Diabetic retinal oedema
     Route: 031
     Dates: start: 20250127, end: 20250127
  5. METHYLCOBALAMIN [Concomitant]
     Active Substance: METHYLCOBALAMIN
     Indication: Diabetic retinopathy
     Route: 048
     Dates: start: 20250324
  6. JOLETHIN [Concomitant]
     Active Substance: JOLETHIN
     Indication: Diabetic retinal oedema
     Route: 048
     Dates: start: 20250206, end: 20250215
  7. LEVOFLOXACIN HYDROCHLORIDE [Concomitant]
     Active Substance: LEVOFLOXACIN HYDROCHLORIDE
     Indication: Prophylaxis
     Route: 047
     Dates: start: 20241227, end: 20241229
  8. LEVOFLOXACIN HYDROCHLORIDE [Concomitant]
     Active Substance: LEVOFLOXACIN HYDROCHLORIDE
     Indication: Prophylaxis
     Route: 047
     Dates: start: 20250303, end: 20250303
  9. LEVOFLOXACIN HYDROCHLORIDE [Concomitant]
     Active Substance: LEVOFLOXACIN HYDROCHLORIDE
     Indication: Prophylaxis
     Route: 047
     Dates: start: 20250106, end: 20250106
  10. LEVOFLOXACIN HYDROCHLORIDE [Concomitant]
     Active Substance: LEVOFLOXACIN HYDROCHLORIDE
     Indication: Prophylaxis
     Route: 047
     Dates: start: 20250508, end: 20250508
  11. LEVOFLOXACIN HYDROCHLORIDE [Concomitant]
     Active Substance: LEVOFLOXACIN HYDROCHLORIDE
     Indication: Prophylaxis
     Route: 047
     Dates: start: 20241205, end: 20241207
  12. LEVOFLOXACIN HYDROCHLORIDE [Concomitant]
     Active Substance: LEVOFLOXACIN HYDROCHLORIDE
     Indication: Prophylaxis
     Route: 047
     Dates: start: 20241204, end: 20241204
  13. LEVOFLOXACIN HYDROCHLORIDE [Concomitant]
     Active Substance: LEVOFLOXACIN HYDROCHLORIDE
     Indication: Prophylaxis
     Route: 047
     Dates: start: 20250504, end: 20250506
  14. LEVOFLOXACIN HYDROCHLORIDE [Concomitant]
     Active Substance: LEVOFLOXACIN HYDROCHLORIDE
     Indication: Prophylaxis
     Route: 047
     Dates: start: 20250123, end: 20250123
  15. LEVOFLOXACIN HYDROCHLORIDE [Concomitant]
     Active Substance: LEVOFLOXACIN HYDROCHLORIDE
     Indication: Prophylaxis
     Route: 047
     Dates: start: 20250124, end: 20250126
  16. LEVOFLOXACIN HYDROCHLORIDE [Concomitant]
     Active Substance: LEVOFLOXACIN HYDROCHLORIDE
     Indication: Prophylaxis
     Route: 048
     Dates: start: 20241130, end: 20241202
  17. LEVOFLOXACIN HYDROCHLORIDE [Concomitant]
     Active Substance: LEVOFLOXACIN HYDROCHLORIDE
     Indication: Prophylaxis
     Route: 047
     Dates: start: 20250107, end: 20250109
  18. LEVOFLOXACIN HYDROCHLORIDE [Concomitant]
     Active Substance: LEVOFLOXACIN HYDROCHLORIDE
     Indication: Prophylaxis
     Route: 047
     Dates: start: 20241226, end: 20241226
  19. LEVOFLOXACIN HYDROCHLORIDE [Concomitant]
     Active Substance: LEVOFLOXACIN HYDROCHLORIDE
     Indication: Prophylaxis
     Route: 047
     Dates: start: 20250226, end: 20250228
  20. LEVOFLOXACIN HYDROCHLORIDE [Concomitant]
     Active Substance: LEVOFLOXACIN HYDROCHLORIDE
     Indication: Prophylaxis
     Route: 047
     Dates: start: 20250412, end: 20250414
  21. GLIMEPIRIDE [Concomitant]
     Active Substance: GLIMEPIRIDE
     Indication: Type 2 diabetes mellitus
     Route: 048
     Dates: start: 2024, end: 20250525
  22. TOBRAMYCIN AND DEXAMETHASONE [Concomitant]
     Active Substance: DEXAMETHASONE\TOBRAMYCIN
     Indication: Prophylaxis
     Route: 047
     Dates: start: 20250508, end: 20250508
  23. TOBRAMYCIN AND DEXAMETHASONE [Concomitant]
     Active Substance: DEXAMETHASONE\TOBRAMYCIN
     Indication: Prophylaxis
     Route: 047
     Dates: start: 20250303, end: 20250303
  24. TOBRAMYCIN AND DEXAMETHASONE [Concomitant]
     Active Substance: DEXAMETHASONE\TOBRAMYCIN
     Indication: Prophylaxis
     Dates: start: 20241226, end: 20241226
  25. TOBRAMYCIN AND DEXAMETHASONE [Concomitant]
     Active Substance: DEXAMETHASONE\TOBRAMYCIN
     Indication: Prophylaxis
     Route: 047
     Dates: start: 20250411, end: 20250411
  26. TOBRAMYCIN AND DEXAMETHASONE [Concomitant]
     Active Substance: DEXAMETHASONE\TOBRAMYCIN
     Indication: Prophylaxis
     Route: 047
     Dates: start: 20250123, end: 20250123
  27. TOBRAMYCIN AND DEXAMETHASONE [Concomitant]
     Active Substance: DEXAMETHASONE\TOBRAMYCIN
     Indication: Prophylaxis
     Route: 047
     Dates: start: 20250225, end: 20250225
  28. TOBRAMYCIN AND DEXAMETHASONE [Concomitant]
     Active Substance: DEXAMETHASONE\TOBRAMYCIN
     Indication: Prophylaxis
     Dates: start: 20241129, end: 20241129
  29. Mai Zhi Ling Pian [Concomitant]
     Indication: Diabetic retinal oedema
     Route: 048
     Dates: start: 20241227, end: 20250105
  30. Compound Danshen [Concomitant]
     Indication: Diabetic retinopathy
     Route: 048
     Dates: start: 20250123, end: 20250209
  31. Compound Danshen [Concomitant]
     Indication: Diabetic retinopathy
     Route: 048
     Dates: start: 20250425, end: 20250430
  32. SODIUM HYALURONATE [Concomitant]
     Active Substance: HYALURONATE SODIUM
     Indication: Prophylaxis
     Route: 047
     Dates: start: 20250304, end: 20250309
  33. SODIUM HYALURONATE [Concomitant]
     Active Substance: HYALURONATE SODIUM
     Indication: Prophylaxis
     Route: 047
     Dates: start: 20250206, end: 20250214
  34. VINCAMINE [Concomitant]
     Active Substance: VINCAMINE
     Indication: Diabetic retinopathy
     Dosage: DOSE FORM: SUSTAINED RELEASE CAPSULES
     Route: 048
     Dates: start: 20250324, end: 20250404
  35. BROMFENAC SODIUM [Concomitant]
     Active Substance: BROMFENAC SODIUM
     Indication: Prophylaxis
     Route: 047
     Dates: start: 20250127, end: 202502
  36. DAPAGLIFLOZIN [Concomitant]
     Active Substance: DAPAGLIFLOZIN
     Indication: Type 2 diabetes mellitus
     Dosage: 5 MILLIGRAM
     Route: 048
     Dates: start: 2021, end: 20250525
  37. CALCIUM DOBESILATE [Concomitant]
     Active Substance: CALCIUM DOBESILATE
     Indication: Diabetic retinopathy
     Route: 048
     Dates: start: 20250206, end: 202504
  38. Tropicamide Phenylephrine [Concomitant]
     Indication: Pupil dilation procedure
     Route: 047
     Dates: start: 20241204, end: 20241204
  39. Tropicamide Phenylephrine [Concomitant]
     Indication: Pupil dilation procedure
     Route: 047
     Dates: start: 20250106, end: 20250106
  40. Tropicamide Phenylephrine [Concomitant]
     Indication: Pupil dilation procedure
     Dates: start: 20241129, end: 20241129
  41. LIDOCAINE HYDROCHLORIDE [Concomitant]
     Active Substance: LIDOCAINE HYDROCHLORIDE
     Indication: Local anaesthesia
     Route: 031
     Dates: start: 20250127, end: 20250127
  42. Proparacaine Hyrochloride [Concomitant]
     Indication: Prophylaxis
     Route: 047
     Dates: start: 20250123, end: 20250123
  43. Proparacaine Hyrochloride [Concomitant]
     Indication: Prophylaxis
     Route: 047
     Dates: start: 20241226, end: 20241226
  44. Proparacaine Hyrochloride [Concomitant]
     Indication: Prophylaxis
     Route: 047
     Dates: start: 20250106, end: 20250106
  45. Proparacaine Hyrochloride [Concomitant]
     Indication: Prophylaxis
     Route: 047
     Dates: start: 20250411, end: 20250411
  46. Proparacaine Hyrochloride [Concomitant]
     Indication: Prophylaxis
     Route: 047
     Dates: start: 20250303, end: 20250303
  47. Proparacaine Hyrochloride [Concomitant]
     Indication: Prophylaxis
     Dates: start: 20241129, end: 20241129
  48. Proparacaine Hyrochloride [Concomitant]
     Indication: Prophylaxis
     Route: 047
     Dates: start: 20250508, end: 20250508
  49. Proparacaine Hyrochloride [Concomitant]
     Indication: Prophylaxis
     Dates: start: 20241204, end: 20241204
  50. Proparacaine Hyrochloride [Concomitant]
     Indication: Prophylaxis
     Route: 047
     Dates: start: 20250225, end: 20250225
  51. DEXAMETHASONE [Concomitant]
     Active Substance: DEXAMETHASONE
     Indication: Diabetic retinal oedema
     Route: 031
     Dates: start: 20250225, end: 20250225

REACTIONS (2)
  - Diabetes mellitus inadequate control [Recovered/Resolved]
  - Intraocular pressure increased [Recovered/Resolved]

NARRATIVE: CASE EVENT DATE: 20241201
